FAERS Safety Report 9748300 (Version 1)
Quarter: 2013Q4

REPORT INFORMATION
  Report Type: Report from Study
  Country: DZ (occurrence: DZ)
  Receive Date: 20131212
  Receipt Date: 20131212
  Transmission Date: 20140711
  Serious: Yes (Death)
  Sender: FDA-Public Use
  Company Number: PHHY2013DZ142895

PATIENT
  Age: 65 Year
  Sex: Female
  Weight: 65 kg

DRUGS (6)
  1. SANDOSTATIN LAR [Suspect]
     Indication: CARCINOID TUMOUR
     Dosage: 10 MG, UNK
     Dates: start: 20120919, end: 20120919
  2. CARBOPLATIN + ETOPOSIDE [Concomitant]
     Indication: NEOPLASM
     Dosage: UNK UKN, UNK
     Dates: start: 20101128, end: 20110301
  3. ALBUMINE [Concomitant]
     Indication: NEOPLASM
     Dosage: UNK UKN, UNK
  4. AZANTAC [Concomitant]
     Dosage: UNK UKN, UNK
  5. PERFALGAN [Concomitant]
     Dosage: UNK UKN, UNK
  6. ERYTHROPOIETIN [Concomitant]
     Indication: ANAEMIA
     Dosage: UNK UKN, UNK
     Dates: start: 20101128, end: 20120318

REACTIONS (1)
  - Death [Fatal]
